FAERS Safety Report 19272159 (Version 3)
Quarter: 2021Q2

REPORT INFORMATION
  Report Type: Spontaneous
  Country: US (occurrence: US)
  Receive Date: 20210518
  Receipt Date: 20210531
  Transmission Date: 20210717
  Serious: No
  Sender: FDA-Public Use
  Company Number: US-SA-2021SA158892

PATIENT
  Age: 57 Year
  Sex: Male

DRUGS (2)
  1. TRULICITY [Concomitant]
     Active Substance: DULAGLUTIDE
  2. LANTUS [Suspect]
     Active Substance: INSULIN GLARGINE
     Indication: TYPE 2 DIABETES MELLITUS
     Dosage: 20 IU, QD
     Route: 065

REACTIONS (4)
  - Device operational issue [Unknown]
  - Incorrect dose administered by device [Unknown]
  - Blood glucose increased [Unknown]
  - Intentional product use issue [Unknown]
